FAERS Safety Report 5310151-5 (Version None)
Quarter: 2007Q2

REPORT INFORMATION
  Report Type: 
  Country: None (occurrence: None)
  Receive Date: 20070423
  Receipt Date: 20070405
  Transmission Date: 20071010
  Serious: Yes (Other)
  Sender: FDA-Public Use
  Company Number: 2007RR-06784

PATIENT
  Age: 71 Year
  Sex: Female
  Weight: 63 kg

DRUGS (5)
  1. FLUOXETINE [Suspect]
     Indication: PANIC ATTACK
     Dosage: 20 MG, QD, ORAL
     Route: 048
     Dates: start: 20060721
  2. ATARAX [Concomitant]
  3. LEVOTHYROXINE SODIUM [Concomitant]
  4. LIPITOR [Concomitant]
  5. LUSTRAL [Concomitant]

REACTIONS (3)
  - DYSPNOEA [None]
  - GLOSSITIS [None]
  - SWOLLEN TONGUE [None]
